FAERS Safety Report 7870400 (Version 3)
Quarter: 2013Q2

REPORT INFORMATION
  Report Type: Spontaneous
  Country: US (occurrence: None)
  Receive Date: 20110302
  Receipt Date: 20120621
  Transmission Date: 20140414
  Serious: Yes (Hospitalization, Other)
  Sender: FDA-Public Use
  Company Number: 027703

PATIENT
  Sex: Male

DRUGS (4)
  1. CIMZIA [Suspect]
     Indication: CROHN^S DISEASE
     Dosage: 400 MG 1X/MONTH SUBCUTANEOUS; SUBCUTANEOUS
     Route: 058
     Dates: start: 200904, end: 20100217
  2. AZATHIOPRINE [Concomitant]
  3. PENTASA [Concomitant]
  4. QUESTRAN [Concomitant]

REACTIONS (10)
  - DRUG INEFFECTIVE [None]
  - Scar [None]
  - Large intestinal stenosis [None]
  - SMALL INTESTINAL OBSTRUCTION [None]
  - INFLAMMATION [None]
  - Crohn^s disease [None]
  - CONDITION AGGRAVATED [None]
  - Intestinal stenosis [None]
  - Ileal fistula [None]
  - Intestinal obstruction [None]
